FAERS Safety Report 9964115 (Version 2)
Quarter: 2014Q1

REPORT INFORMATION
  Report Type: Spontaneous
  Country: US (occurrence: US)
  Receive Date: 20140305
  Receipt Date: 20140325
  Transmission Date: 20141002
  Serious: Yes (Other)
  Sender: FDA-Public Use
  Company Number: US-TEVA-466642USA

PATIENT
  Age: 24 Year
  Sex: Female
  Weight: 146 kg

DRUGS (4)
  1. PARAGARD 380A [Suspect]
     Indication: CONTRACEPTION
     Route: 015
     Dates: start: 20140127, end: 20140303
  2. PARAGARD 380A [Suspect]
     Route: 015
     Dates: start: 20140303
  3. VESICARE [Concomitant]
     Indication: CYSTITIS INTERSTITIAL
  4. FLONASE [Concomitant]
     Indication: HYPERSENSITIVITY

REACTIONS (1)
  - Device dislocation [Recovered/Resolved]
